FAERS Safety Report 5470269-3 (Version None)
Quarter: 2007Q3

REPORT INFORMATION
  Report Type: 
  Country: None (occurrence: None)
  Receive Date: 20070927
  Receipt Date: 20070917
  Transmission Date: 20080115
  Serious: Yes (Hospitalization)
  Sender: FDA-Public Use
  Company Number: US-ABBOTT-07P-163-0417381-00

PATIENT
  Sex: Female

DRUGS (5)
  1. VICODIN [Suspect]
     Indication: DRUG USE FOR UNKNOWN INDICATION
     Dates: start: 20070808, end: 20070809
  2. ETANERCEPT [Suspect]
     Indication: PSORIASIS
     Route: 058
     Dates: start: 20070629
  3. GABAPENTIN [Suspect]
     Indication: DRUG USE FOR UNKNOWN INDICATION
     Dates: start: 20070808, end: 20070809
  4. IBUPROFEN [Concomitant]
     Indication: DRUG USE FOR UNKNOWN INDICATION
     Dates: start: 20070806, end: 20070807
  5. VALACYCLOVIR HYDROCHLORIDE [Concomitant]
     Indication: DRUG USE FOR UNKNOWN INDICATION
     Dates: start: 20070808, end: 20070813

REACTIONS (9)
  - ABDOMINAL PAIN [None]
  - ACUTE PRERENAL FAILURE [None]
  - BACK PAIN [None]
  - BLISTER [None]
  - FAECES DISCOLOURED [None]
  - HEADACHE [None]
  - HERPES ZOSTER [None]
  - NAUSEA [None]
  - ORAL INTAKE REDUCED [None]
